FAERS Safety Report 7777390-5 (Version None)
Quarter: 2011Q3

REPORT INFORMATION
  Report Type: 
  Country: None (occurrence: None)
  Receive Date: 20110926
  Receipt Date: 20110919
  Transmission Date: 20111222
  Serious: Yes (Hospitalization, Other)
  Sender: FDA-Public Use
  Company Number: FR-JNJFOC-20110800886

PATIENT
  Age: 82 Year
  Sex: Female
  Weight: 70 kg

DRUGS (9)
  1. XARELTO [Suspect]
     Route: 065
  2. XARELTO [Suspect]
     Indication: THROMBOSIS PROPHYLAXIS
     Route: 065
  3. ESCITALOPRAM OXALATE [Concomitant]
  4. HALDOL [Concomitant]
  5. XANAX [Concomitant]
  6. ACTONEL [Concomitant]
  7. XARELTO [Suspect]
     Route: 065
  8. XARELTO [Suspect]
     Indication: ORTHOPEDIC PROCEDURE
     Route: 065
  9. CALCIPRAT [Concomitant]

REACTIONS (2)
  - DEEP VEIN THROMBOSIS [None]
  - PAIN [None]
